FAERS Safety Report 16555842 (Version 2)
Quarter: 2019Q3

REPORT INFORMATION
  Report Type: Spontaneous
  Country: US (occurrence: US)
  Receive Date: 20190710
  Receipt Date: 20190719
  Transmission Date: 20191004
  Serious: Yes (Other)
  Sender: FDA-Public Use
  Company Number: US-ALLERGAN-1928165US

PATIENT
  Sex: Female

DRUGS (4)
  1. REFRESH PLUS [Suspect]
     Active Substance: CARBOXYMETHYLCELLULOSE SODIUM
     Indication: DRY EYE
     Dosage: 1 GTT, 3-4 TIMES A DAY
     Route: 047
     Dates: start: 201810
  2. VASELINE PURE [Concomitant]
     Active Substance: PETROLATUM
     Route: 047
  3. REFRESH PLUS [Suspect]
     Active Substance: CARBOXYMETHYLCELLULOSE SODIUM
     Dosage: UNK
     Route: 047
  4. REFRESH PLUS [Suspect]
     Active Substance: CARBOXYMETHYLCELLULOSE SODIUM
     Dosage: UNK
     Route: 047

REACTIONS (3)
  - Corneal transplant [Recovered/Resolved]
  - Wrong technique in product usage process [Unknown]
  - Product dropper issue [Unknown]

NARRATIVE: CASE EVENT DATE: 201905
